FAERS Safety Report 5677549-7 (Version None)
Quarter: 2008Q1

REPORT INFORMATION
  Report Type: 
  Country: None (occurrence: None)
  Receive Date: 20080324
  Receipt Date: 20080310
  Transmission Date: 20080703
  Serious: Yes (Death)
  Sender: FDA-Public Use
  Company Number: GB-BAUSCH-2008BL001049

PATIENT
  Age: 68 Year
  Sex: Male
  Weight: 82 kg

DRUGS (5)
  1. GENTAMICIN [Suspect]
     Indication: NEUTROPENIC SEPSIS
     Route: 042
     Dates: start: 20080213, end: 20080213
  2. CO-CODAMOL [Concomitant]
     Indication: DRUG USE FOR UNKNOWN INDICATION
  3. DIGOXIN [Concomitant]
     Indication: DRUG USE FOR UNKNOWN INDICATION
     Dates: start: 20080101
  4. DOMPERIDONE [Concomitant]
     Indication: DRUG USE FOR UNKNOWN INDICATION
     Route: 048
  5. TAXOTERE [Concomitant]
     Indication: LUNG NEOPLASM MALIGNANT
     Dates: start: 20080206

REACTIONS (1)
  - RENAL FAILURE ACUTE [None]
